FAERS Safety Report 13419673 (Version 1)
Quarter: 2017Q2

REPORT INFORMATION
  Report Type: Spontaneous
  Country: DE (occurrence: DE)
  Receive Date: 20170407
  Receipt Date: 20170407
  Transmission Date: 20170830
  Serious: Yes (Hospitalization)
  Sender: FDA-Public Use
  Company Number: DE-ACCORD-006003

PATIENT
  Age: 21 Year
  Sex: Male
  Weight: 108 kg

DRUGS (1)
  1. TOPIRAMATE. [Suspect]
     Active Substance: TOPIRAMATE
     Dosage: INGESTED ABOUT 40, 200 MG TABLETS OF TPM ?REINTRODUCED TPM IN MONOTHERAPY 3 WEEKS BEFORE THE...

REACTIONS (4)
  - Intentional overdose [Unknown]
  - Cognitive disorder [Recovered/Resolved]
  - Status epilepticus [Recovered/Resolved]
  - Suicide attempt [Unknown]
